FAERS Safety Report 9928476 (Version 1)
Quarter: 2014Q1

REPORT INFORMATION
  Report Type: Report from Study
  Country: US (occurrence: US)
  Receive Date: 20140227
  Receipt Date: 20140227
  Transmission Date: 20141002
  Serious: Yes (Other)
  Sender: FDA-Public Use
  Company Number: US-ASTELLAS-2014US002002

PATIENT
  Sex: Female

DRUGS (10)
  1. ERLOTINIB TABLET [Suspect]
     Indication: LUNG NEOPLASM MALIGNANT
     Dosage: 150 MG, UID/QD
     Route: 048
     Dates: start: 201310
  2. MELOXICAM [Concomitant]
     Indication: GROIN PAIN
     Dosage: UNK
     Route: 048
     Dates: start: 201307
  3. TRAMADOL [Concomitant]
     Indication: PAIN
     Dosage: 50 MG, UNKNOWN/D
     Route: 048
  4. PERCOCET                           /00446701/ [Concomitant]
     Indication: PAIN
     Dosage: OTHER-AT BEDTIME
     Route: 048
  5. XGEVA [Concomitant]
     Indication: PRODUCT USED FOR UNKNOWN INDICATION
     Dosage: 1 DF, MONTHLY
     Route: 065
  6. REGLAN                             /00041902/ [Concomitant]
     Indication: PRODUCT USED FOR UNKNOWN INDICATION
     Dosage: BEFORE MEALS
     Route: 048
  7. PEPCID                             /00706001/ [Concomitant]
     Indication: GASTROOESOPHAGEAL REFLUX DISEASE
     Dosage: 10 HOURS BEFORE TARCEVA
     Route: 048
     Dates: start: 201310
  8. PHOSPHATE                          /01053101/ [Concomitant]
     Indication: PRODUCT USED FOR UNKNOWN INDICATION
     Dosage: UNK
     Route: 065
  9. ACAMPROSATE CALCIUM [Concomitant]
     Indication: PRODUCT USED FOR UNKNOWN INDICATION
     Dosage: UNK
     Route: 065
  10. UNSPECIFIED TRADITIONAL MEDICINE [Concomitant]
     Indication: PRODUCT USED FOR UNKNOWN INDICATION
     Dosage: UNK
     Route: 065

REACTIONS (7)
  - Dysphagia [Not Recovered/Not Resolved]
  - Hair growth abnormal [Not Recovered/Not Resolved]
  - Dry skin [Not Recovered/Not Resolved]
  - Pain in extremity [Unknown]
  - Weight decreased [Unknown]
  - Decreased appetite [Unknown]
  - Rash [Not Recovered/Not Resolved]
